FAERS Safety Report 7911861-3 (Version None)
Quarter: 2011Q4

REPORT INFORMATION
  Report Type: 
  Country: None (occurrence: None)
  Receive Date: 20111114
  Receipt Date: 20111109
  Transmission Date: 20120403
  Serious: Yes (Other)
  Sender: FDA-Public Use
  Company Number: PT-ROCHE-1010873

PATIENT
  Age: 45 Year
  Sex: Female
  Weight: 65 kg

DRUGS (3)
  1. PREGABALIN [Concomitant]
     Indication: PRODUCT USED FOR UNKNOWN INDICATION
     Route: 065
  2. COPEGUS [Suspect]
     Indication: HEPATITIS C
     Dates: start: 20090601, end: 20091201
  3. PEGINTERFERON ALFA-2B [Suspect]
     Indication: HEPATITIS C
     Dates: start: 20090601, end: 20091201

REACTIONS (8)
  - MUCOSAL EXFOLIATION [None]
  - RASH MACULAR [None]
  - TYPE IV HYPERSENSITIVITY REACTION [None]
  - RASH GENERALISED [None]
  - RASH PAPULAR [None]
  - RASH ERYTHEMATOUS [None]
  - SKIN EXFOLIATION [None]
  - RASH PRURITIC [None]
